FAERS Safety Report 17714521 (Version 1)
Quarter: 2020Q2

REPORT INFORMATION
  Report Type: Spontaneous
  Country: DE (occurrence: DE)
  Receive Date: 20200427
  Receipt Date: 20200427
  Transmission Date: 20200714
  Serious: Yes (Other)
  Sender: FDA-Public Use
  Company Number: DE-JNJFOC-20200425981

PATIENT
  Age: 77 Year
  Sex: Male

DRUGS (5)
  1. RISPERDAL [Suspect]
     Active Substance: RISPERIDONE
     Indication: SCHIZOPHRENIA
     Route: 065
  2. QUETIAPINE. [Suspect]
     Active Substance: QUETIAPINE
     Indication: SCHIZOPHRENIA
  3. PROMETHAZINE [Suspect]
     Active Substance: PROMETHAZINE HYDROCHLORIDE
     Indication: SCHIZOPHRENIA
  4. MELPERONE [Suspect]
     Active Substance: MELPERONE
     Indication: SCHIZOPHRENIA
  5. OLANZAPINE. [Suspect]
     Active Substance: OLANZAPINE
     Indication: SCHIZOPHRENIA

REACTIONS (7)
  - Weight decreased [Unknown]
  - Dementia [Unknown]
  - Tardive dyskinesia [Unknown]
  - Dysphagia [Unknown]
  - Aspiration [Unknown]
  - Selective eating disorder [Unknown]
  - Marasmus [Unknown]
